FAERS Safety Report 18079008 (Version 1)
Quarter: 2020Q3

REPORT INFORMATION
  Report Type: Spontaneous
  Country: US (occurrence: US)
  Receive Date: 20200728
  Receipt Date: 20200728
  Transmission Date: 20201103
  Serious: No
  Sender: FDA-Public Use
  Company Number: US-PFIZER INC-2020284686

PATIENT
  Age: 62 Year
  Sex: Female
  Weight: 88.45 kg

DRUGS (2)
  1. PREGABALIN. [Suspect]
     Active Substance: PREGABALIN
     Indication: FIBROMYALGIA
     Dosage: 100 MG, 2X/DAY
  2. GABAPENTIN. [Suspect]
     Active Substance: GABAPENTIN
     Indication: FIBROMYALGIA
     Dosage: 75 MG, 2X/DAY

REACTIONS (4)
  - Drug ineffective [Unknown]
  - Drug ineffective for unapproved indication [Unknown]
  - Wrong strength [Unknown]
  - Off label use [Unknown]
